FAERS Safety Report 25371564 (Version 2)
Quarter: 2025Q2

REPORT INFORMATION
  Report Type: Spontaneous
  Country: US (occurrence: US)
  Receive Date: 20250529
  Receipt Date: 20250602
  Transmission Date: 20250716
  Serious: Yes (Hospitalization)
  Sender: ROCHE
  Company Number: US-ROCHE-10000292284

PATIENT
  Sex: Female

DRUGS (3)
  1. XOLAIR PFS [Suspect]
     Active Substance: OMALIZUMAB
     Indication: Idiopathic urticaria
     Dosage: ONGOING, STRENGTH:300MG/2ML
     Route: 058
     Dates: start: 202501
  2. XOLAIR PFS [Suspect]
     Active Substance: OMALIZUMAB
  3. KALYDECO [Concomitant]
     Active Substance: IVACAFTOR

REACTIONS (1)
  - Cystic fibrosis [Unknown]
